FAERS Safety Report 7640561-2 (Version None)
Quarter: 2011Q3

REPORT INFORMATION
  Report Type: 
  Country: None (occurrence: None)
  Receive Date: 20110728
  Receipt Date: 20091124
  Transmission Date: 20111222
  Serious: No
  Sender: FDA-Public Use
  Company Number: 2009BI038951

PATIENT
  Age: 45 Year
  Sex: Female

DRUGS (1)
  1. TYSABRI [Suspect]
     Indication: MULTIPLE SCLEROSIS
     Route: 042
     Dates: start: 20090828

REACTIONS (7)
  - COGNITIVE DISORDER [None]
  - HUNGER [None]
  - URINARY INCONTINENCE [None]
  - DYSPHONIA [None]
  - DEPRESSION [None]
  - AMNESIA [None]
  - FATIGUE [None]
